FAERS Safety Report 25144023 (Version 1)
Quarter: 2025Q2

REPORT INFORMATION
  Report Type: Spontaneous
  Country: US (occurrence: US)
  Receive Date: 20250401
  Receipt Date: 20250401
  Transmission Date: 20250717
  Serious: Yes (Other)
  Sender: ALEXION PHARMACEUTICALS
  Company Number: US-AstraZeneca-CH-00835477AM

PATIENT

DRUGS (2)
  1. LYNPARZA [Suspect]
     Active Substance: OLAPARIB
     Dosage: 600 MILLIGRAM, QD
     Route: 065
  2. LYNPARZA [Suspect]
     Active Substance: OLAPARIB
     Dosage: 450 MILLIGRAM, QD
     Route: 065

REACTIONS (2)
  - Recurrent cancer [Unknown]
  - Off label use [Unknown]
